FAERS Safety Report 23017826 (Version 2)
Quarter: 2024Q1

REPORT INFORMATION
  Report Type: Spontaneous
  Country: JP (occurrence: JP)
  Receive Date: 20231003
  Receipt Date: 20240126
  Transmission Date: 20240410
  Serious: Yes (Hospitalization)
  Sender: FDA-Public Use
  Company Number: JP-CHUGAI-2023034575

PATIENT
  Age: 18 Year
  Sex: Female
  Weight: 44 kg

DRUGS (2)
  1. EVRYSDI [Suspect]
     Active Substance: RISDIPLAM
     Indication: Spinal muscular atrophy
     Route: 065
     Dates: start: 20230513, end: 20230919
  2. EVRYSDI [Suspect]
     Active Substance: RISDIPLAM
     Route: 065
     Dates: start: 202310

REACTIONS (5)
  - Diarrhoea [Recovering/Resolving]
  - Pyrexia [Not Recovered/Not Resolved]
  - Subileus [Recovering/Resolving]
  - Constipation [Unknown]
  - Faeces soft [Recovering/Resolving]

NARRATIVE: CASE EVENT DATE: 20230601
